FAERS Safety Report 6221781-0 (Version None)
Quarter: 2009Q2

REPORT INFORMATION
  Report Type: 
  Country: None (occurrence: None)
  Receive Date: 20090610
  Receipt Date: 20090601
  Transmission Date: 20091009
  Serious: Yes (Other)
  Sender: FDA-Public Use
  Company Number: US-AMGEN-TCS346472

PATIENT
  Sex: Male
  Weight: 99 kg

DRUGS (4)
  1. ENBREL [Suspect]
     Indication: PSORIATIC ARTHROPATHY
     Route: 058
     Dates: start: 20071201, end: 20090410
  2. LOTREL [Concomitant]
  3. CELEBREX [Concomitant]
  4. DOXYCYCLINE [Concomitant]

REACTIONS (3)
  - CRANIAL NERVE DISORDER [None]
  - NAIL INFECTION [None]
  - PAROTITIS [None]
